FAERS Safety Report 25526618 (Version 1)
Quarter: 2025Q3

REPORT INFORMATION
  Report Type: Other
  Country: JP (occurrence: JP)
  Receive Date: 20250707
  Receipt Date: 20250707
  Transmission Date: 20251020
  Serious: Yes (Other)
  Sender: PRASCO
  Company Number: JP-Prasco Laboratories-PRAS20250272

PATIENT
  Age: 85 Year
  Sex: Female
  Weight: 41.3 kg

DRUGS (8)
  1. SULFAMETHOXAZOLE\TRIMETHOPRIM [Suspect]
     Active Substance: SULFAMETHOXAZOLE\TRIMETHOPRIM
     Indication: Infection prophylaxis
     Route: 048
  2. POLAPREZINC [Concomitant]
     Active Substance: POLAPREZINC
  3. ETIZOLAM [Concomitant]
     Active Substance: ETIZOLAM
  4. ZOPICLONE [Concomitant]
     Active Substance: ZOPICLONE
  5. METHYLCOBALAMIN [Concomitant]
     Active Substance: METHYLCOBALAMIN
  6. SULPIRIDE [Concomitant]
     Active Substance: SULPIRIDE
  7. CILNIDIPINE [Concomitant]
     Active Substance: CILNIDIPINE
  8. LANSOPRAZOLE [Concomitant]
     Active Substance: LANSOPRAZOLE

REACTIONS (2)
  - Acute kidney injury [Recovering/Resolving]
  - Renal tubular injury [Recovering/Resolving]
